FAERS Safety Report 15145550 (Version 1)
Quarter: 2018Q3

REPORT INFORMATION
  Report Type: Report from Study
  Country: IT (occurrence: IT)
  Receive Date: 20180713
  Receipt Date: 20180713
  Transmission Date: 20181010
  Serious: Yes (Other)
  Sender: FDA-Public Use
  Company Number: IT-TEVA-2018-IT-881483

PATIENT
  Age: 48 Year
  Sex: Female

DRUGS (2)
  1. CARDIOASPIRIN [Suspect]
     Active Substance: ASPIRIN
     Indication: RETINAL VASCULAR THROMBOSIS
     Route: 065
  2. TICLOPIDINE [Suspect]
     Active Substance: TICLOPIDINE
     Indication: RETINAL VASCULAR THROMBOSIS
     Route: 065

REACTIONS (5)
  - Rectal haemorrhage [Unknown]
  - Hyperhidrosis [Unknown]
  - Hypotension [Unknown]
  - Haemorrhoidal haemorrhage [Unknown]
  - Malaise [Unknown]

NARRATIVE: CASE EVENT DATE: 20171213
